FAERS Safety Report 25837440 (Version 1)
Quarter: 2025Q3

REPORT INFORMATION
  Report Type: Spontaneous
  Country: JP (occurrence: JP)
  Receive Date: 20250923
  Receipt Date: 20250923
  Transmission Date: 20251021
  Serious: Yes (Other)
  Sender: BRISTOL-MYERS SQUIBB COMPANY
  Company Number: JP-BRISTOL-MYERS SQUIBB COMPANY-2025-128908

PATIENT
  Age: 7 Decade
  Sex: Male

DRUGS (1)
  1. SOTYKTU [Suspect]
     Active Substance: DEUCRAVACITINIB
     Indication: Psoriasis

REACTIONS (5)
  - Colitis ulcerative [Unknown]
  - Anorectal disorder [Unknown]
  - Constipation [Unknown]
  - Musculoskeletal pain [Unknown]
  - Mucosal erosion [Unknown]

NARRATIVE: CASE EVENT DATE: 20250916
